FAERS Safety Report 25898616 (Version 1)
Quarter: 2025Q4

REPORT INFORMATION
  Report Type: Spontaneous
  Country: US (occurrence: US)
  Receive Date: 20251009
  Receipt Date: 20251009
  Transmission Date: 20260117
  Serious: Yes (Hospitalization, Other)
  Sender: Pyros Pharmaceuticals
  Company Number: US-PYROS PHARMACEUTICALS, INC-20250901259

PATIENT

DRUGS (2)
  1. VIGAFYDE [Suspect]
     Active Substance: VIGABATRIN
     Indication: Infantile spasms
     Dosage: 17.5 ML, QD, 7.5 ML EVERY MORNING AND 10 ML AT NIGHT
     Dates: start: 20250425
  2. VIGAFYDE [Suspect]
     Active Substance: VIGABATRIN
     Dosage: 10 ML, BID
     Dates: start: 20250425

REACTIONS (5)
  - Generalised tonic-clonic seizure [Recovered/Resolved]
  - Dyspnoea [Recovered/Resolved]
  - Dehydration [Recovered/Resolved]
  - Viral infection [Recovered/Resolved]
  - Vomiting [Recovered/Resolved]

NARRATIVE: CASE EVENT DATE: 20250101
